FAERS Safety Report 20887128 (Version 1)
Quarter: 2022Q2

REPORT INFORMATION
  Report Type: Spontaneous
  Country: FR (occurrence: FR)
  Receive Date: 20220528
  Receipt Date: 20220528
  Transmission Date: 20220721
  Serious: Yes (Other)
  Sender: FDA-Public Use
  Company Number: None

PATIENT
  Age: 72 Year
  Sex: Female

DRUGS (15)
  1. DULOXETINE HYDROCHLORIDE [Suspect]
     Active Substance: DULOXETINE HYDROCHLORIDE
     Indication: Product used for unknown indication
     Dosage: UNIT DOSE 60 MG
     Route: 048
     Dates: start: 2021
  2. VIMPAT [Suspect]
     Active Substance: LACOSAMIDE
     Indication: Seizure
     Dosage: VIMPAT 50 MG FILM-COATED TABLETS,UNIT DOSE 50 MG,FREQUENCY TIME 12  HOURS
     Route: 048
     Dates: start: 2021
  3. PREGABALIN [Suspect]
     Active Substance: PREGABALIN
     Dosage: PREGABALINE ACCORD 150 MG, CAPSULE,FREQUENCY TIME 1 DAYS
     Route: 048
  4. PREGABALIN [Suspect]
     Active Substance: PREGABALIN
     Dosage: PREGABALINE ACCORD 300 MG, CAPSULE,UNIT DOSE 300 MG, FREQUENCY TIME 1 DAYS
     Route: 048
  5. VESICARE [Suspect]
     Active Substance: SOLIFENACIN SUCCINATE
     Dosage: VESICARE 5 MG FILM-COATED TABLETS,UNIT DOSE 5  MG, FREQUENCY TIME 1 DAYS
     Route: 048
     Dates: start: 2021
  6. VIMPAT [Suspect]
     Active Substance: LACOSAMIDE
     Indication: Seizure
     Dosage: VIMPAT 100 MG FILM-COATED TABLETS,UNIT DOSE 100 MG, FREQUENCY TIME 12 HOURS
     Route: 048
     Dates: start: 2021
  7. CHOLECALCIFEROL [Concomitant]
     Active Substance: CHOLECALCIFEROL
     Dosage: 50000 IU TWICE A MONTH
     Dates: start: 2021
  8. LACTULOSE [Concomitant]
     Active Substance: LACTULOSE
     Dosage: 4 PER DAY
     Dates: start: 2021
  9. NORMACOL [Concomitant]
     Active Substance: HERBALS\KARAYA GUM
     Dosage: 3 PER MONTH
     Dates: start: 2021
  10. BISOPROLOL FUMARATE [Concomitant]
     Active Substance: BISOPROLOL FUMARATE
     Dosage: UNIT DOSE 1.25 MG, FREQUENCY TIME 1 DAYS,
     Route: 048
     Dates: start: 2021
  11. DOLIPRANE [Concomitant]
     Active Substance: ACETAMINOPHEN
     Dosage: IF NECESSARY,UNIT DOSE 500 MG, FREQUENCY TIME 4 HOURS
     Dates: start: 2021
  12. APIXABAN [Concomitant]
     Active Substance: APIXABAN
     Dosage: UNIT DOSE 5 MG, FREQUENCY TIME 12 HOURS
     Dates: start: 2021
  13. KARDEGIC [Concomitant]
     Active Substance: ASPIRIN DL-LYSINE
     Dosage: KARDEGIC 75 MG, POWDER FOR ORAL SOLUTION IN SACHET-DOSE,UNIT DOSE 75 MG, FREQUENCY TIME 1 DAYS
     Dates: start: 2021
  14. MINERAL OIL [Concomitant]
     Active Substance: MINERAL OIL
     Dosage: 3 DOSES PER DAY
     Dates: start: 2021
  15. PANTOPRAZOLE [Concomitant]
     Active Substance: PANTOPRAZOLE
     Dosage: UNIT DOSE 400 MG, FREQUENCY TIME 1 DAYS
     Dates: start: 2021

REACTIONS (2)
  - Hallucinations, mixed [Not Recovered/Not Resolved]
  - Behaviour disorder [Not Recovered/Not Resolved]

NARRATIVE: CASE EVENT DATE: 20210101
